FAERS Safety Report 7427359-5 (Version None)
Quarter: 2011Q2

REPORT INFORMATION
  Report Type: 
  Country: None (occurrence: None)
  Receive Date: 20110420
  Receipt Date: 20110412
  Transmission Date: 20111010
  Serious: Yes (Hospitalization, Disabling, Other)
  Sender: FDA-Public Use
  Company Number: US-ELI_LILLY_AND_COMPANY-US201104004681

PATIENT
  Age: 46 Year
  Sex: Male

DRUGS (3)
  1. HUMULIN R [Suspect]
     Indication: DIABETES MELLITUS
     Dosage: UNK UNK, OTHER
     Dates: start: 19910101
  2. HUMULIN R [Suspect]
     Dosage: UNK, OTHER
     Dates: start: 19910101
  3. HUMULIN 70/30 [Suspect]

REACTIONS (6)
  - BLINDNESS UNILATERAL [None]
  - ASTHENIA [None]
  - CEREBROVASCULAR ACCIDENT [None]
  - HEMIPLEGIA [None]
  - MEMORY IMPAIRMENT [None]
  - LIMB INJURY [None]
